FAERS Safety Report 5833442-8 (Version None)
Quarter: 2008Q3

REPORT INFORMATION
  Report Type: 
  Country: None (occurrence: None)
  Receive Date: 20080731
  Receipt Date: 20080722
  Transmission Date: 20090109
  Serious: Yes (Congenital Anomaly)
  Sender: FDA-Public Use
  Company Number: 2008AP000151

PATIENT
  Sex: Female

DRUGS (1)
  1. PAROXETINE HYDROCHLORIDE [Suspect]
     Dosage: TRPL
     Route: 064
     Dates: start: 19990101, end: 20040101

REACTIONS (2)
  - FALLOT'S TETRALOGY [None]
  - MATERNAL DRUGS AFFECTING FOETUS [None]
